FAERS Safety Report 8538551-0 (Version None)
Quarter: 2012Q3

REPORT INFORMATION
  Report Type: 
  Country: None (occurrence: None)
  Receive Date: 20120726
  Receipt Date: 20120717
  Transmission Date: 20120928
  Serious: Yes (Other)
  Sender: FDA-Public Use
  Company Number: US-JNJFOC-20120709997

PATIENT
  Sex: Male
  Weight: 113.4 kg

DRUGS (9)
  1. FENTANYL-100 [Suspect]
     Route: 062
     Dates: end: 20110101
  2. FENTANYL-100 [Suspect]
     Route: 062
     Dates: start: 20110101
  3. FUROSEMIDE [Concomitant]
     Indication: FLUID RETENTION
     Route: 048
  4. FENTANYL-100 [Suspect]
     Route: 062
  5. OXYCODONE HCL [Suspect]
     Route: 048
  6. SPIRONOLACTONE [Concomitant]
     Indication: PRODUCT USED FOR UNKNOWN INDICATION
     Route: 048
  7. OXYCODONE HCL [Suspect]
     Indication: PAIN
     Route: 048
     Dates: end: 20110101
  8. FENTANYL-100 [Suspect]
     Indication: NEUROPATHY PERIPHERAL
     Route: 062
  9. LEVOTHYROXINE SODIUM [Concomitant]
     Indication: THYROID DISORDER
     Route: 048

REACTIONS (6)
  - DRUG ADMINISTERED AT INAPPROPRIATE SITE [None]
  - CONSTIPATION [None]
  - THERAPEUTIC RESPONSE DECREASED [None]
  - ABNORMAL LOSS OF WEIGHT [None]
  - DYSURIA [None]
  - DRUG LEVEL ABOVE THERAPEUTIC [None]
